FAERS Safety Report 5040430-0 (Version None)
Quarter: 2006Q2

REPORT INFORMATION
  Report Type: 
  Country: None (occurrence: None)
  Receive Date: 20060627
  Receipt Date: 20060627
  Transmission Date: 20061013
  Serious: Yes (Hospitalization)
  Sender: FDA-Public Use
  Company Number: None

PATIENT
  Age: 51 Year
  Sex: Female
  Weight: 100.7 kg

DRUGS (4)
  1. HUMIRA [Suspect]
     Indication: RHEUMATOID ARTHRITIS
     Dosage: 40 MG EVERY WEEK SQ
     Route: 058
  2. EVOXAC [Concomitant]
  3. PREDNISONE TAB [Concomitant]
  4. DOXEPIN [Concomitant]

REACTIONS (4)
  - NAUSEA [None]
  - PRURITUS [None]
  - THERAPY NON-RESPONDER [None]
  - URTICARIA [None]
